FAERS Safety Report 25236739 (Version 2)
Quarter: 2025Q4

REPORT INFORMATION
  Report Type: Spontaneous
  Country: US (occurrence: US)
  Receive Date: 20250424
  Receipt Date: 20251104
  Transmission Date: 20260118
  Serious: Yes (Death, Other)
  Sender: PURDUE
  Company Number: US-PURDUE PHARMA-USA-2025-0316972

PATIENT
  Age: 24 Year
  Sex: Female

DRUGS (4)
  1. OXYCODONE HYDROCHLORIDE [Suspect]
     Active Substance: OXYCODONE HYDROCHLORIDE
     Indication: Pain
     Dosage: UNKNOWN (30 OXYCODONE PILLS BEFORE THE SURGERY)
     Route: 065
  2. OXYCODONE HYDROCHLORIDE [Suspect]
     Active Substance: OXYCODONE HYDROCHLORIDE
     Dosage: UNKNOWN (ANOTHER 30 PILLS THREE DAYS BEFORE THE PROCEDURE)
     Route: 065
  3. OXYCODONE HYDROCHLORIDE [Suspect]
     Active Substance: OXYCODONE HYDROCHLORIDE
     Dosage: UNKNOWN (PRESCRIBED ANOTHER 30 OXYCODONE PILLS, THIS TIME AT A HIGHER DOSAGE POST PROCEDURE)
     Route: 065
  4. MORPHINE SULFATE [Suspect]
     Active Substance: MORPHINE SULFATE
     Indication: Pain
     Dosage: UNK
     Route: 065

REACTIONS (3)
  - Victim of homicide [Fatal]
  - Overdose [Fatal]
  - Drug screen positive [Unknown]

NARRATIVE: CASE EVENT DATE: 20200101
